FAERS Safety Report 22048692 (Version 1)
Quarter: 2023Q1

REPORT INFORMATION
  Report Type: Spontaneous
  Country: DE (occurrence: DE)
  Receive Date: 20230301
  Receipt Date: 20230301
  Transmission Date: 20230418
  Serious: Yes (Other)
  Sender: FDA-Public Use
  Company Number: DE-MYLANLABS-2023M1020860

PATIENT
  Age: 71 Year
  Sex: Female

DRUGS (8)
  1. FLUOROURACIL [Suspect]
     Active Substance: FLUOROURACIL
     Indication: Metastases to lung
     Dosage: UNK,RECEIVED 8 COURSES; AS A PART OF FOLFIRINOX REGIMEN
     Route: 065
     Dates: start: 201904, end: 201908
  2. FLUOROURACIL [Suspect]
     Active Substance: FLUOROURACIL
     Dosage: UNK THERAPY RE-STARTED
     Route: 065
  3. IRINOTECAN [Suspect]
     Active Substance: IRINOTECAN
     Indication: Metastases to lung
     Dosage: UNK, RECEIVED 8 COURSES; AS A PART OF FOLFIRINOX REGIMEN
     Route: 065
     Dates: start: 201904, end: 201908
  4. IRINOTECAN [Suspect]
     Active Substance: IRINOTECAN
     Dosage: UNK THERAPY RE-STARTED
     Route: 065
  5. LEUCOVORIN [Suspect]
     Active Substance: LEUCOVORIN
     Indication: Metastases to lung
     Dosage: UNK, RECEIVED 8 COURSES; AS A PART OF FOLFIRINOX REGIMEN
     Route: 065
     Dates: start: 201904, end: 201908
  6. LEUCOVORIN [Suspect]
     Active Substance: LEUCOVORIN
     Dosage: UNK  THERAPY RE-STARTED
     Route: 065
  7. OXALIPLATIN [Suspect]
     Active Substance: OXALIPLATIN
     Indication: Metastases to lung
     Dosage: UNK, RECEIVED 8 COURSES; AS A PART OF FOLFIRINOX REGIMEN
     Route: 065
     Dates: start: 201904, end: 201908
  8. OXALIPLATIN [Suspect]
     Active Substance: OXALIPLATIN
     Dosage: UNK, THERAPY RE-STARTED
     Route: 065

REACTIONS (1)
  - Drug ineffective [Unknown]
